FAERS Safety Report 22282169 (Version 1)
Quarter: 2023Q2

REPORT INFORMATION
  Report Type: Spontaneous
  Country: US (occurrence: US)
  Receive Date: 20230504
  Receipt Date: 20230504
  Transmission Date: 20230722
  Serious: No
  Sender: FDA-Public Use
  Company Number: US-CIPLA LTD.-2023US01578

PATIENT

DRUGS (6)
  1. ALBUTEROL [Suspect]
     Active Substance: ALBUTEROL
     Indication: Dyspnoea
     Dosage: UNK, AS NEEDED
     Dates: start: 2022
  2. ALBUTEROL [Suspect]
     Active Substance: ALBUTEROL
     Indication: Cough
     Dosage: UNK, AS NEEDED
     Dates: start: 20230312
  3. KOSA [Concomitant]
     Indication: Hypertension
     Dosage: 50 MILLIGRAM, QD
     Route: 065
  4. ATENOLOL [Concomitant]
     Active Substance: ATENOLOL
     Indication: Hypertension
     Dosage: 25 MILLIGRAM, QD
     Route: 065
  5. ALUMINUM HYDROXIDE\MAGNESIUM CARBONATE [Concomitant]
     Active Substance: ALUMINUM HYDROXIDE\MAGNESIUM CARBONATE
     Indication: Gastric pH decreased
     Dosage: 40 MILLIGRAM, BID
     Route: 065
  6. LIPITOR [Concomitant]
     Active Substance: ATORVASTATIN CALCIUM
     Indication: Blood cholesterol abnormal
     Dosage: 10 MILLIGRAM, SINGLE (ONCE)
     Route: 065

REACTIONS (4)
  - Wheezing [Not Recovered/Not Resolved]
  - Device delivery system issue [Unknown]
  - Drug dose omission by device [Unknown]
  - Product design issue [Unknown]

NARRATIVE: CASE EVENT DATE: 20230312
